FAERS Safety Report 23990718 (Version 1)
Quarter: 2024Q2

REPORT INFORMATION
  Report Type: Spontaneous
  Country: JP (occurrence: JP)
  Receive Date: 20240619
  Receipt Date: 20240619
  Transmission Date: 20240716
  Serious: Yes (Death, Hospitalization)
  Sender: FDA-Public Use
  Company Number: JP-BoehringerIngelheim-2020-BI-072434

PATIENT
  Age: 70 Year
  Sex: Male
  Weight: 40 kg

DRUGS (3)
  1. GILOTRIF [Suspect]
     Active Substance: AFATINIB
     Indication: Lung adenocarcinoma stage IV
     Route: 065
  2. GILOTRIF [Suspect]
     Active Substance: AFATINIB
     Route: 065
  3. NIVOLUMAB [Concomitant]
     Active Substance: NIVOLUMAB
     Indication: Lung adenocarcinoma stage IV
     Route: 065

REACTIONS (10)
  - Cachexia [Fatal]
  - Dysarthria [Unknown]
  - Paresis [Unknown]
  - Dysphagia [Unknown]
  - Anaemia [Unknown]
  - C-reactive protein increased [Unknown]
  - Hypoalbuminaemia [Unknown]
  - Carcinoembryonic antigen increased [Unknown]
  - Malignant neoplasm progression [Unknown]
  - Drug ineffective [Unknown]

NARRATIVE: CASE EVENT DATE: 20180601
